FAERS Safety Report 10073510 (Version 2)
Quarter: 2014Q2

REPORT INFORMATION
  Report Type: Report from Study
  Country: IL (occurrence: IL)
  Receive Date: 20140411
  Receipt Date: 20140515
  Transmission Date: 20141212
  Serious: Yes (Hospitalization, Other)
  Sender: FDA-Public Use
  Company Number: IL-SHIRE-IL201401039

PATIENT
  Sex: Male

DRUGS (1)
  1. 489 (LISDEXAMFETAMINE DIMESYLATE) [Suspect]
     Indication: PRODUCT USED FOR UNKNOWN INDICATION
     Dosage: 30 MG, UNKNOWN
     Route: 048
     Dates: start: 201403, end: 201403

REACTIONS (5)
  - Haematoma [Unknown]
  - Activated partial thromboplastin time prolonged [Recovered/Resolved]
  - Abdominal pain upper [Unknown]
  - Palpitations [Unknown]
  - Vomiting [Unknown]
